FAERS Safety Report 7763887-0 (Version None)
Quarter: 2011Q3

REPORT INFORMATION
  Report Type: 
  Country: None (occurrence: None)
  Receive Date: 20110919
  Receipt Date: 20110901
  Transmission Date: 20111222
  Serious: Yes (Hospitalization)
  Sender: FDA-Public Use
  Company Number: DSA_47574_2011

PATIENT
  Age: 84 Year
  Sex: Female

DRUGS (6)
  1. ENALAPRIL MALEATE [Suspect]
     Indication: HYPERTENSION
     Dosage: (20 MG QD ORAL), (10 MG QD ORAL), (5 MG QD ORAL)
     Route: 048
     Dates: start: 20101013, end: 20110415
  2. ENALAPRIL MALEATE [Suspect]
     Indication: HYPERTENSION
     Dosage: (20 MG QD ORAL), (10 MG QD ORAL), (5 MG QD ORAL)
     Route: 048
     Dates: end: 20101012
  3. ENALAPRIL MALEATE [Suspect]
     Indication: HYPERTENSION
     Dosage: (20 MG QD ORAL), (10 MG QD ORAL), (5 MG QD ORAL)
     Route: 048
     Dates: start: 20110415, end: 20110527
  4. COVERSYL /00790702/ [Concomitant]
  5. MIRTAZAPINE [Suspect]
     Dosage: (DF ORAL)
     Route: 048
     Dates: start: 20101001, end: 20110401
  6. HALDOL [Suspect]
     Dosage: (DF ORAL)
     Route: 048
     Dates: start: 20101001, end: 20110401

REACTIONS (6)
  - AGGRESSION [None]
  - SOMNOLENCE [None]
  - PSYCHOMOTOR HYPERACTIVITY [None]
  - ANAEMIA [None]
  - HYPERGLYCAEMIA [None]
  - HYPONATRAEMIA [None]
